FAERS Safety Report 6914270-9 (Version None)
Quarter: 2010Q3

REPORT INFORMATION
  Report Type: 
  Country: None (occurrence: None)
  Receive Date: 20100809
  Receipt Date: 20100729
  Transmission Date: 20110219
  Serious: Yes (Life-Threatening, Hospitalization)
  Sender: FDA-Public Use
  Company Number: B0614648A

PATIENT
  Sex: Female
  Weight: 102 kg

DRUGS (1)
  1. PAZOPANIB [Suspect]
     Indication: SARCOMA
     Route: 048
     Dates: start: 20091124, end: 20091206

REACTIONS (11)
  - ABDOMINAL DISCOMFORT [None]
  - COMPULSIVE LIP BITING [None]
  - CONVULSION [None]
  - DISORIENTATION [None]
  - HEADACHE [None]
  - LOSS OF CONSCIOUSNESS [None]
  - MALAISE [None]
  - SOMNOLENCE [None]
  - SUBARACHNOID HAEMORRHAGE [None]
  - TONGUE BITING [None]
  - VISUAL IMPAIRMENT [None]
